FAERS Safety Report 21285122 (Version 1)
Quarter: 2022Q3

REPORT INFORMATION
  Report Type: Spontaneous
  Country: US (occurrence: US)
  Receive Date: 20220902
  Receipt Date: 20220902
  Transmission Date: 20221027
  Serious: No
  Sender: FDA-Public Use
  Company Number: US-TEVA-2022-US-2067715

PATIENT
  Age: 80 Year
  Sex: Male

DRUGS (1)
  1. CLONIDINE HYDROCHLORIDE [Suspect]
     Active Substance: CLONIDINE HYDROCHLORIDE
     Indication: Product used for unknown indication
     Dosage: 0.2 MG/24HR
     Route: 062

REACTIONS (2)
  - Application site burn [Unknown]
  - Device use issue [Unknown]

NARRATIVE: CASE EVENT DATE: 20220101
